FAERS Safety Report 9517843 (Version 1)
Quarter: 2013Q3

REPORT INFORMATION
  Report Type: Spontaneous
  Country: GB (occurrence: GB)
  Receive Date: 20130912
  Receipt Date: 20130912
  Transmission Date: 20140515
  Serious: Yes (Other)
  Sender: FDA-Public Use
  Company Number: GB-009507513-1309GBR003774

PATIENT
  Age: 43 Year
  Sex: Female
  Weight: 154 kg

DRUGS (1)
  1. NEXPLANON [Suspect]
     Dosage: 68 MG, UNK
     Route: 058
     Dates: start: 20130812, end: 20130827

REACTIONS (3)
  - Erythema [Unknown]
  - Arthralgia [Unknown]
  - Rash pruritic [Unknown]
